FAERS Safety Report 4386478-0 (Version None)
Quarter: 2004Q2

REPORT INFORMATION
  Report Type: 
  Country: None (occurrence: None)
  Receive Date: 20040623
  Receipt Date: 20040614
  Transmission Date: 20050107
  Serious: Yes (Death, Life-Threatening, Hospitalization, Disabling, Other)
  Sender: FDA-Public Use
  Company Number: 2004EU001100

PATIENT
  Age: 32 Year
  Sex: Female
  Weight: 64 kg

DRUGS (8)
  1. PROGRAF [Suspect]
     Indication: RENAL TRANSPLANT
     Dosage: SEE IMAGE
     Route: 048
     Dates: start: 20040316, end: 20040318
  2. PROGRAF [Suspect]
     Indication: RENAL TRANSPLANT
     Dosage: SEE IMAGE
     Route: 048
     Dates: start: 20040318, end: 20040321
  3. CELLCEPT [Suspect]
     Dosage: 2.00 G, UID/QD
  4. SIMULECT [Concomitant]
  5. PREDNISONE TAB [Concomitant]
  6. LASIX [Concomitant]
  7. VANCOMYCIN [Concomitant]
  8. HEPARIN [Concomitant]

REACTIONS (4)
  - BLINDNESS [None]
  - CONVULSION [None]
  - HEMIPLEGIA [None]
  - LEUKOENCEPHALOPATHY [None]
